FAERS Safety Report 18703854 (Version 1)
Quarter: 2021Q1

REPORT INFORMATION
  Report Type: Other
  Country: US (occurrence: US)
  Receive Date: 20210106
  Receipt Date: 20210106
  Transmission Date: 20210419
  Serious: Yes (Other)
  Sender: FDA-Public Use
  Company Number: US-ROCHE-2741484

PATIENT
  Sex: Female
  Weight: 64.92 kg

DRUGS (4)
  1. APREMILAST [Concomitant]
     Active Substance: APREMILAST
     Dosage: APPROXIMATELY 12 HOURS APART
     Route: 048
  2. AZELASTINE. [Concomitant]
     Active Substance: AZELASTINE HYDROCHLORIDE
     Dosage: 1 SPRAY IN EACH NOSTRIL
     Route: 045
  3. OTEZLA [Concomitant]
     Active Substance: APREMILAST
     Dosage: APPROXIMATELY 12 HOURS APART
     Route: 048
  4. VALIUM [Suspect]
     Active Substance: DIAZEPAM
     Indication: PRODUCT USED FOR UNKNOWN INDICATION
     Dosage: TAKE 1 TABLET 30 MINS PRIOR MRI
     Route: 065

REACTIONS (1)
  - Multiple sclerosis relapse [Unknown]
